FAERS Safety Report 14911430 (Version 3)
Quarter: 2018Q3

REPORT INFORMATION
  Report Type: Spontaneous
  Country: US (occurrence: US)
  Receive Date: 20180518
  Receipt Date: 20180802
  Transmission Date: 20181010
  Serious: No
  Sender: FDA-Public Use
  Company Number: US-BIOGEN-2015BI019412

PATIENT
  Sex: Female

DRUGS (2)
  1. AVONEX [Suspect]
     Active Substance: INTERFERON BETA-1A
     Route: 065
     Dates: end: 201709
  2. AVONEX [Suspect]
     Active Substance: INTERFERON BETA-1A
     Indication: MULTIPLE SCLEROSIS
     Route: 065
     Dates: end: 201501

REACTIONS (6)
  - Injection site erythema [Unknown]
  - Needle fatigue [Unknown]
  - Injection site pruritus [Unknown]
  - Drug intolerance [Recovered/Resolved]
  - Injection site reaction [Unknown]
  - Fatigue [Unknown]
